FAERS Safety Report 20222377 (Version 2)
Quarter: 2022Q1

REPORT INFORMATION
  Report Type: Spontaneous
  Country: US (occurrence: US)
  Receive Date: 20211223
  Receipt Date: 20220114
  Transmission Date: 20220423
  Serious: No
  Sender: FDA-Public Use
  Company Number: US-ALKERMES INC.-ALK-2021-006575

PATIENT
  Age: 39 Year
  Sex: Female
  Weight: 104.13 kg

DRUGS (5)
  1. LYBALVI [Suspect]
     Active Substance: OLANZAPINE\SAMIDORPHAN L-MALATE
     Indication: Bipolar II disorder
     Dosage: 10/10 MILLIGRAM, QD
     Route: 048
     Dates: start: 20211127, end: 20211127
  2. LYBALVI [Suspect]
     Active Substance: OLANZAPINE\SAMIDORPHAN L-MALATE
     Dosage: 10/10 MILLIGRAM, QD
     Route: 048
     Dates: start: 20211112, end: 20211112
  3. XANAX XR [Concomitant]
     Active Substance: ALPRAZOLAM
     Indication: Product used for unknown indication
     Dosage: 1 MILLIGRAM, QD
     Route: 065
  4. LUNESTA [Concomitant]
     Active Substance: ESZOPICLONE
     Indication: Product used for unknown indication
     Dosage: 2 MILLIGRAM, QD
     Route: 065
  5. FENOXIL [Concomitant]
     Indication: Product used for unknown indication
     Dosage: 1 MILLIGRAM, BID
     Route: 065

REACTIONS (3)
  - Off label use [Recovered/Resolved]
  - Renal pain [Recovered/Resolved]
  - Peripheral swelling [Recovered/Resolved]

NARRATIVE: CASE EVENT DATE: 20211101
